FAERS Safety Report 5103406-0 (Version None)
Quarter: 2006Q3

REPORT INFORMATION
  Report Type: 
  Country: None (occurrence: None)
  Receive Date: 20060913
  Receipt Date: 20060809
  Transmission Date: 20061208
  Serious: Yes (Hospitalization)
  Sender: FDA-Public Use
  Company Number: HQWYE296110AUG06

PATIENT
  Sex: Female

DRUGS (6)
  1. ENBREL [Suspect]
     Indication: RHEUMATOID ARTHRITIS
     Route: 058
     Dates: start: 20050614, end: 20060523
  2. ACTONEL [Concomitant]
     Route: 048
     Dates: start: 20060228, end: 20060426
  3. ALOSENN [Concomitant]
     Indication: CONSTIPATION
     Route: 048
  4. MEDROL [Concomitant]
     Route: 048
  5. ASPARA-CA [Concomitant]
     Route: 048
  6. D-PENICILLAMINE [Concomitant]
     Dates: end: 20060426

REACTIONS (3)
  - ARTHRALGIA [None]
  - CONDITION AGGRAVATED [None]
  - RENAL ARTERITIS [None]
